FAERS Safety Report 25924006 (Version 1)
Quarter: 2025Q4

REPORT INFORMATION
  Report Type: Spontaneous
  Country: GB (occurrence: GB)
  Receive Date: 20251015
  Receipt Date: 20251015
  Transmission Date: 20260118
  Serious: Yes (Other)
  Sender: AUROBINDO
  Company Number: GB-SANDOZ-SDZ2023GB040578

PATIENT
  Sex: Female

DRUGS (4)
  1. LENALIDOMIDE [Suspect]
     Active Substance: LENALIDOMIDE
     Indication: Neoplasm malignant
     Dosage: 10 MILLIGRAM, ONCE A DAY  (10 MG, DAILY FOR 21 DAYS THEN 7 DAYS RES)
     Route: 048
  2. LENALIDOMIDE [Suspect]
     Active Substance: LENALIDOMIDE
     Indication: Neoplasm malignant
  3. ASPIRIN [Suspect]
     Active Substance: ASPIRIN
     Indication: Product used for unknown indication
     Dosage: 75 MILLIGRAM
     Route: 065
  4. FILGRASTIM [Suspect]
     Active Substance: FILGRASTIM
     Indication: Product used for unknown indication
     Dosage: 300 MILLIGRAM, EVERY WEEK  (ONCE WEEKLY 4 WEEKLY, 30 MU/0.5 ML)
     Route: 065

REACTIONS (4)
  - White blood cell count decreased [Unknown]
  - Skin operation [Unknown]
  - Product dose omission issue [Unknown]
  - Therapy interrupted [Unknown]
